FAERS Safety Report 7281398-6 (Version None)
Quarter: 2011Q1

REPORT INFORMATION
  Report Type: 
  Country: None (occurrence: None)
  Receive Date: 20110203
  Receipt Date: 20110203
  Transmission Date: 20110831
  Serious: Yes (Other)
  Sender: FDA-Public Use
  Company Number: None

PATIENT
  Sex: Female

DRUGS (1)
  1. RAMIPRIL [Suspect]
     Dosage: 1 CAPSULE TWICE DAILY
     Dates: start: 20110121

REACTIONS (1)
  - BLOOD PRESSURE INADEQUATELY CONTROLLED [None]
